FAERS Safety Report 23044888 (Version 2)
Quarter: 2023Q4

REPORT INFORMATION
  Report Type: Spontaneous
  Country: US (occurrence: US)
  Receive Date: 20231009
  Receipt Date: 20231221
  Transmission Date: 20240110
  Serious: No
  Sender: FDA-Public Use
  Company Number: US-PFIZER INC-202300317742

PATIENT
  Age: 51 Year
  Sex: Female

DRUGS (1)
  1. NURTEC ODT [Suspect]
     Active Substance: RIMEGEPANT SULFATE
     Dosage: 75 MG

REACTIONS (3)
  - Drug ineffective [Unknown]
  - Somnolence [Unknown]
  - Loss of personal independence in daily activities [Unknown]
